FAERS Safety Report 7767232-6 (Version None)
Quarter: 2011Q3

REPORT INFORMATION
  Report Type: 
  Country: None (occurrence: None)
  Receive Date: 20110922
  Receipt Date: 20100106
  Transmission Date: 20111222
  Serious: No
  Sender: FDA-Public Use
  Company Number: US-ASTRAZENECA-2008UW03293

PATIENT
  Age: 427 Month
  Sex: Male
  Weight: 105.7 kg

DRUGS (2)
  1. SEROQUEL [Suspect]
     Dosage: 100 MG CHANGED TO 300 MG
     Route: 048
     Dates: start: 20030112
  2. THORAZINE [Concomitant]

REACTIONS (4)
  - DEPRESSION [None]
  - BLOOD GLUCOSE DECREASED [None]
  - DIABETES MELLITUS [None]
  - WEIGHT INCREASED [None]
